FAERS Safety Report 19969136 (Version 1)
Quarter: 2021Q4

REPORT INFORMATION
  Report Type: Spontaneous
  Country: US (occurrence: US)
  Receive Date: 20211019
  Receipt Date: 20211019
  Transmission Date: 20220304
  Serious: No
  Sender: FDA-Public Use
  Company Number: US-UROGEN PHARMA LTD.-2021-UGN-000063

PATIENT
  Age: 62 Year

DRUGS (7)
  1. JELMYTO [Suspect]
     Active Substance: MITOMYCIN
     Indication: Product used for unknown indication
     Dosage: UNK (INSTILLATION)
     Dates: start: 20210429, end: 20210429
  2. JELMYTO [Suspect]
     Active Substance: MITOMYCIN
     Dosage: UNK (INSTILLATION)
     Dates: start: 20210506, end: 20210506
  3. JELMYTO [Suspect]
     Active Substance: MITOMYCIN
     Dosage: UNK (INSTILLATION)
     Dates: start: 20210511, end: 20210511
  4. JELMYTO [Suspect]
     Active Substance: MITOMYCIN
     Dosage: UNK (INSTILLATION)
     Dates: start: 20210518, end: 20210518
  5. JELMYTO [Suspect]
     Active Substance: MITOMYCIN
     Dosage: UNK (INSTILLATION)
     Dates: start: 20210527, end: 20210527
  6. JELMYTO [Suspect]
     Active Substance: MITOMYCIN
     Dosage: UNK (INSTILLATION)
     Dates: start: 20210603, end: 20210603
  7. JELMYTO [Suspect]
     Active Substance: MITOMYCIN
     Dosage: UNK (INSTILLATION)
     Dates: start: 20210721, end: 20210721

REACTIONS (1)
  - Adverse drug reaction [Unknown]
